FAERS Safety Report 20592538 (Version 1)
Quarter: 2022Q1

REPORT INFORMATION
  Report Type: Spontaneous
  Country: US (occurrence: None)
  Receive Date: 20220314
  Receipt Date: 20220314
  Transmission Date: 20220423
  Serious: No
  Sender: FDA-Public Use
  Company Number: US-ROCHE-2836804

PATIENT
  Age: 62 Year
  Sex: Female
  Weight: 104.42 kg

DRUGS (12)
  1. XOLAIR [Suspect]
     Active Substance: OMALIZUMAB
     Indication: Asthma
     Route: 065
     Dates: start: 20190905, end: 2021
  2. ALBUTEROL [Concomitant]
     Active Substance: ALBUTEROL
     Indication: Asthma
     Dosage: 2 PUFFS
     Route: 055
  3. ALBUTEROL [Concomitant]
     Active Substance: ALBUTEROL
     Dosage: TAKES MORE THAN 2 PUFFS
     Route: 055
  4. BUDESONIDE [Concomitant]
     Active Substance: BUDESONIDE
     Indication: Asthma
     Dosage: MIX WITH BROVANA
     Route: 055
  5. BUDESONIDE [Concomitant]
     Active Substance: BUDESONIDE
     Dosage: 6 OR MORE TIMES A DAY MIXED WITH BROVANA
     Route: 055
  6. BROVANA [Concomitant]
     Active Substance: ARFORMOTEROL TARTRATE
     Indication: Asthma
     Dosage: COMBINE WITH BUDESONIDE IN NEBULIZER
     Route: 055
  7. BROVANA [Concomitant]
     Active Substance: ARFORMOTEROL TARTRATE
     Dosage: 6 OR MORE TIMES COMBINED WITH BUDESONIDE
     Route: 055
  8. BYSTOLIC [Concomitant]
     Active Substance: NEBIVOLOL HYDROCHLORIDE
     Indication: Hypertension
  9. FLUTICASONE PROPIONATE [Concomitant]
     Active Substance: FLUTICASONE PROPIONATE
     Indication: Hypersensitivity
     Route: 045
  10. TRELEGY ELLIPTA [Concomitant]
     Active Substance: FLUTICASONE FUROATE\UMECLIDINIUM BROMIDE\VILANTEROL TRIFENATATE
     Indication: Asthma
     Dosage: 200/6.25-25 MICROGRAMS
  11. OXYGEN [Concomitant]
     Active Substance: OXYGEN
     Indication: Asthma
     Dosage: AT NIGHT TIME ONLY ;
     Route: 055
     Dates: end: 202105
  12. OXYGEN [Concomitant]
     Active Substance: OXYGEN
     Dosage: 24 HOURS A DAY
     Route: 055
     Dates: end: 202105

REACTIONS (1)
  - Asthma [Not Recovered/Not Resolved]

NARRATIVE: CASE EVENT DATE: 20210501
